FAERS Safety Report 13346653 (Version 1)
Quarter: 2017Q1

REPORT INFORMATION
  Report Type: Spontaneous
  Country: AT (occurrence: AT)
  Receive Date: 20170317
  Receipt Date: 20170317
  Transmission Date: 20170428
  Serious: Yes (Death)
  Sender: FDA-Public Use
  Company Number: AT-ASTRAZENECA-2017SE28280

PATIENT
  Age: 82 Year
  Sex: Female

DRUGS (15)
  1. SODIUM CHLORIDE. [Concomitant]
     Active Substance: SODIUM CHLORIDE
     Dosage: 750.0ML UNKNOWN
     Dates: start: 20030723
  2. RENITEC [Suspect]
     Active Substance: ENALAPRIL MALEATE
     Dosage: SINCE A LONG TIME
     Route: 065
  3. GEWACALM [Concomitant]
     Active Substance: DIAZEPAM
     Dosage: 5.0MG UNKNOWN
     Dates: start: 20030726
  4. TRITTICO AC [Concomitant]
     Active Substance: TRAZODONE HYDROCHLORIDE
  5. POTASSIUM CHLORIDE. [Concomitant]
     Active Substance: POTASSIUM CHLORIDE
     Dates: start: 20030723
  6. HALDOL [Suspect]
     Active Substance: HALOPERIDOL
     Dosage: 10.0MG UNKNOWN
     Route: 065
     Dates: start: 20030723
  7. ISOPTIN [Concomitant]
     Active Substance: VERAPAMIL HYDROCHLORIDE
     Dosage: 240.0MG UNKNOWN
  8. SEROQUEL [Suspect]
     Active Substance: QUETIAPINE FUMARATE
     Dosage: 75.0MG UNKNOWN
     Route: 048
     Dates: start: 20030725, end: 20030725
  9. GEWACALM [Concomitant]
     Active Substance: DIAZEPAM
     Dosage: 10.0MG UNKNOWN
     Dates: start: 20030723, end: 20030725
  10. PANTOLOC [Concomitant]
     Active Substance: PANTOPRAZOLE SODIUM
     Dosage: 80.0MG UNKNOWN
     Dates: start: 20030723
  11. AKINETON [Concomitant]
     Active Substance: BIPERIDEN HYDROCHLORIDE
     Dosage: 4.0MG UNKNOWN
     Dates: start: 20030724, end: 20030725
  12. SEROQUEL [Suspect]
     Active Substance: QUETIAPINE FUMARATE
     Dosage: 100.0MG UNKNOWN
     Route: 048
     Dates: start: 20030726
  13. SEROQUEL [Suspect]
     Active Substance: QUETIAPINE FUMARATE
     Dosage: 50.0MG UNKNOWN
     Route: 048
     Dates: start: 20030724, end: 20030724
  14. FOSAMAX [Concomitant]
     Active Substance: ALENDRONATE SODIUM
  15. CALCIUM CARBONATE. [Concomitant]
     Active Substance: CALCIUM CARBONATE
     Dosage: SINCE A LONG TIME

REACTIONS (4)
  - Pulmonary embolism [Fatal]
  - Hypokalaemia [Fatal]
  - Deep vein thrombosis [Fatal]
  - Hyponatraemia [Fatal]

NARRATIVE: CASE EVENT DATE: 20030727
